FAERS Safety Report 5328995-2 (Version None)
Quarter: 2007Q2

REPORT INFORMATION
  Report Type: 
  Country: None (occurrence: None)
  Receive Date: 20070518
  Receipt Date: 20070514
  Transmission Date: 20071010
  Serious: Yes (Hospitalization)
  Sender: FDA-Public Use
  Company Number: FR-BRISTOL-MYERS SQUIBB COMPANY-13780218

PATIENT
  Age: 48 Year
  Sex: Male

DRUGS (10)
  1. VIDEX [Suspect]
     Indication: HIV INFECTION
     Route: 048
     Dates: start: 20040201, end: 20070406
  2. RIVOTRIL [Concomitant]
  3. DEPAKENE [Concomitant]
  4. ASPEGIC 1000 [Concomitant]
  5. BACTRIM [Concomitant]
  6. ARTANE [Concomitant]
  7. LOXAPAC [Concomitant]
  8. EPIVIR [Concomitant]
  9. KALETRA [Concomitant]
  10. SEROPRAM [Concomitant]

REACTIONS (4)
  - ANOREXIA [None]
  - DIABETES MELLITUS [None]
  - DIABETIC HYPERGLYCAEMIC COMA [None]
  - GENERAL PHYSICAL HEALTH DETERIORATION [None]
